FAERS Safety Report 17562974 (Version 7)
Quarter: 2021Q1

REPORT INFORMATION
  Report Type: Report from Study
  Country: None (occurrence: US)
  Receive Date: 20200319
  Receipt Date: 20210217
  Transmission Date: 20210419
  Serious: Yes (Other)
  Sender: FDA-Public Use
  Company Number: US-ABBVIE-19K-163-3150020-00

PATIENT
  Sex: Female

DRUGS (20)
  1. IMBRUVICA [Suspect]
     Active Substance: IBRUTINIB
     Indication: B-CELL LYMPHOMA
     Route: 048
     Dates: start: 20191230
  2. IMBRUVICA [Suspect]
     Active Substance: IBRUTINIB
     Route: 048
     Dates: start: 20190213
  3. CHOLECALCIFEROL [Concomitant]
     Active Substance: CHOLECALCIFEROL
     Indication: PRODUCT USED FOR UNKNOWN INDICATION
  4. CALCIUM [Concomitant]
     Active Substance: CALCIUM
     Indication: PRODUCT USED FOR UNKNOWN INDICATION
  5. PROTONIX                           /00661201/ [Concomitant]
     Active Substance: OMEPRAZOLE
     Indication: PRODUCT USED FOR UNKNOWN INDICATION
  6. IMBRUVICA [Suspect]
     Active Substance: IBRUTINIB
     Indication: NON-HODGKIN^S LYMPHOMA
     Dosage: 420 MG, QD
     Route: 048
     Dates: start: 20190213
  7. VITAMIN C [Concomitant]
     Active Substance: ASCORBIC ACID
     Indication: PRODUCT USED FOR UNKNOWN INDICATION
  8. IMBRUVICA [Suspect]
     Active Substance: IBRUTINIB
     Route: 048
     Dates: start: 20191227
  9. B?COMPLEX                          /00003501/ [Concomitant]
     Active Substance: CYANOCOBALAMIN\DEXPANTHENOL\NIACINAMIDE\PYRIDOXINE HYDROCHLORIDE\RIBOFLAVIN 5^-PHOSPHATE SODIUM\THIAMINE HYDROCHLORIDE\VITAMIN B COMPLEX
     Indication: PRODUCT USED FOR UNKNOWN INDICATION
  10. IMBRUVICA [Suspect]
     Active Substance: IBRUTINIB
     Route: 048
  11. CETIRIZINE HCL [Concomitant]
     Active Substance: CETIRIZINE HYDROCHLORIDE
     Indication: PRODUCT USED FOR UNKNOWN INDICATION
  12. VALSARTAN. [Concomitant]
     Active Substance: VALSARTAN
     Indication: PRODUCT USED FOR UNKNOWN INDICATION
  13. RALOXIFENE HYDROCHLORIDE. [Concomitant]
     Active Substance: RALOXIFENE HYDROCHLORIDE
     Indication: PRODUCT USED FOR UNKNOWN INDICATION
  14. POTASSIMIN [Concomitant]
     Indication: PRODUCT USED FOR UNKNOWN INDICATION
  15. IMBRUVICA [Suspect]
     Active Substance: IBRUTINIB
     Route: 048
     Dates: start: 20191227
  16. IMBRUVICA [Suspect]
     Active Substance: IBRUTINIB
     Route: 048
  17. IMBRUVICA [Suspect]
     Active Substance: IBRUTINIB
     Route: 048
  18. IMBRUVICA [Suspect]
     Active Substance: IBRUTINIB
     Route: 048
  19. IMBRUVICA [Suspect]
     Active Substance: IBRUTINIB
     Route: 048
     Dates: start: 201912
  20. CYANOCOBALAMIN. [Concomitant]
     Active Substance: CYANOCOBALAMIN
     Indication: PRODUCT USED FOR UNKNOWN INDICATION

REACTIONS (22)
  - Tendon disorder [Unknown]
  - Macular degeneration [Unknown]
  - Foreign body sensation in eyes [Not Recovered/Not Resolved]
  - Weight increased [Unknown]
  - Osteoarthritis [Unknown]
  - Increased tendency to bruise [Unknown]
  - Contusion [Unknown]
  - Joint effusion [Unknown]
  - Gastrooesophageal reflux disease [Unknown]
  - Lower respiratory tract infection [Unknown]
  - Muscle spasms [Unknown]
  - Blindness unilateral [Unknown]
  - Haemoglobin abnormal [Recovering/Resolving]
  - Muscle spasms [Recovering/Resolving]
  - Joint swelling [Unknown]
  - Bone pain [Unknown]
  - Myalgia [Unknown]
  - Ligament sprain [Not Recovered/Not Resolved]
  - Abdominal discomfort [Unknown]
  - Peripheral swelling [Not Recovered/Not Resolved]
  - Meniscus injury [Unknown]
  - Fatigue [Unknown]

NARRATIVE: CASE EVENT DATE: 2020
